FAERS Safety Report 10441108 (Version 1)
Quarter: 2014Q3

REPORT INFORMATION
  Report Type: Spontaneous
  Country: US (occurrence: None)
  Receive Date: 20140905
  Receipt Date: 20140905
  Transmission Date: 20150326
  Serious: Yes (Other)
  Sender: FDA-Public Use
  Company Number: 2014SMT00055

PATIENT
  Age: 51 Year
  Sex: Male
  Weight: 131.5 kg

DRUGS (1)
  1. REGRANEX [Suspect]
     Active Substance: BECAPLERMIN
     Indication: WOUND
     Dates: start: 201406, end: 201407

REACTIONS (3)
  - Excessive granulation tissue [None]
  - Condition aggravated [None]
  - Wound [None]

NARRATIVE: CASE EVENT DATE: 201407
